FAERS Safety Report 25450018 (Version 2)
Quarter: 2025Q3

REPORT INFORMATION
  Report Type: Report from Study
  Country: US (occurrence: US)
  Receive Date: 20250618
  Receipt Date: 20250708
  Transmission Date: 20251020
  Serious: Yes (Hospitalization)
  Sender: RECORDATI
  Company Number: US-ORPHANEU-2025004235

PATIENT
  Sex: Male
  Weight: 11.293 kg

DRUGS (4)
  1. CARBAGLU [Suspect]
     Active Substance: CARGLUMIC ACID
     Indication: Product used for unknown indication
     Dosage: 300 MG, BID, 200 MG TABLETS 1.5 IN 2.5 ML WATER
  2. CARBAGLU [Suspect]
     Active Substance: CARGLUMIC ACID
     Dosage: DISSOLVE 1.5 (ONE AND ONE HALF) 200 MG TABLETS IN 2.5 ML OF WATER PER TABLE
  3. FAMOTIDINE [Concomitant]
     Active Substance: FAMOTIDINE
     Indication: Product used for unknown indication
  4. LEVOCARNITINE [Concomitant]
     Active Substance: LEVOCARNITINE
     Indication: Product used for unknown indication

REACTIONS (3)
  - Illness [Not Recovered/Not Resolved]
  - Blood ketone body increased [Unknown]
  - Vomiting [Unknown]

NARRATIVE: CASE EVENT DATE: 20250101
